FAERS Safety Report 15490537 (Version 2)
Quarter: 2018Q4

REPORT INFORMATION
  Report Type: Report from Study
  Country: BR (occurrence: BR)
  Receive Date: 20181011
  Receipt Date: 20181101
  Transmission Date: 20190205
  Serious: Yes (Other)
  Sender: FDA-Public Use
  Company Number: PHHY2018BR119404

PATIENT
  Sex: Female
  Weight: 76 kg

DRUGS (2)
  1. GALVUS MET [Suspect]
     Active Substance: METFORMIN HYDROCHLORIDE\VILDAGLIPTIN
     Indication: DIABETES MELLITUS
     Dosage: UNK, Q12H (VILDAGLIPTIN 50 MG,METFORMIN 850 MG)
     Route: 048
  2. DIOVAN [Suspect]
     Active Substance: VALSARTAN
     Indication: HYPERTENSION
     Dosage: 320 MG, BID
     Route: 048

REACTIONS (6)
  - Blood pressure decreased [Unknown]
  - Blood pressure increased [Unknown]
  - Overdose [Unknown]
  - Diabetes mellitus [Unknown]
  - Renal disorder [Unknown]
  - Drug intolerance [Unknown]
